FAERS Safety Report 5795532-8 (Version None)
Quarter: 2008Q2

REPORT INFORMATION
  Report Type: 
  Country: None (occurrence: None)
  Receive Date: 20080630
  Receipt Date: 20080618
  Transmission Date: 20081010
  Serious: Yes (Other)
  Sender: FDA-Public Use
  Company Number: US-PFIZER INC-2008050657

PATIENT
  Sex: Female
  Weight: 79.8 kg

DRUGS (3)
  1. CHANTIX [Suspect]
     Indication: EX-SMOKER
     Dates: start: 20080401, end: 20080601
  2. HERBAL NOS/VITAMINS NOS [Concomitant]
  3. HERBAL PREPARATION [Concomitant]

REACTIONS (8)
  - BLINDNESS [None]
  - CYSTITIS [None]
  - DISORIENTATION [None]
  - HEADACHE [None]
  - MEMORY IMPAIRMENT [None]
  - MUSCLE SPASMS [None]
  - SCOTOMA [None]
  - WEIGHT INCREASED [None]
